FAERS Safety Report 7827342-1 (Version None)
Quarter: 2011Q4

REPORT INFORMATION
  Report Type: 
  Country: None (occurrence: None)
  Receive Date: 20111020
  Receipt Date: 20111011
  Transmission Date: 20120403
  Serious: Yes (Other)
  Sender: FDA-Public Use
  Company Number: BR-PFIZER INC-2011157042

PATIENT
  Age: 41 Year
  Sex: Male
  Weight: 74 kg

DRUGS (4)
  1. VARENICLINE TARTRATE [Suspect]
     Indication: SMOKING CESSATION THERAPY
     Dosage: UNK
     Route: 048
     Dates: start: 20110409, end: 20110101
  2. VARENICLINE TARTRATE [Suspect]
     Dosage: UNK
     Route: 048
     Dates: start: 20110801, end: 20110101
  3. VARENICLINE TARTRATE [Suspect]
     Dosage: 1 MG, 2X/DAY (EVERY 12 HOURS)
     Route: 048
     Dates: start: 20110101, end: 20110101
  4. CLONAZEPAM [Concomitant]
     Indication: SMOKING CESSATION THERAPY

REACTIONS (4)
  - AFFECT LABILITY [None]
  - WITHDRAWAL SYNDROME [None]
  - DEPRESSION [None]
  - ANXIETY [None]
